FAERS Safety Report 7641720-5 (Version None)
Quarter: 2011Q3

REPORT INFORMATION
  Report Type: 
  Country: None (occurrence: None)
  Receive Date: 20110727
  Receipt Date: 20110727
  Transmission Date: 20111222
  Serious: No
  Sender: FDA-Public Use
  Company Number: None

PATIENT
  Sex: Male
  Weight: 116 kg

DRUGS (2)
  1. DAUNORUBICIN HCL [Suspect]
     Dosage: 447 MG
     Dates: end: 20110605
  2. CYTARABINE [Suspect]
     Dosage: 1736 MG
     Dates: end: 20110609

REACTIONS (6)
  - PYREXIA [None]
  - SYNCOPE [None]
  - LUNG INFILTRATION [None]
  - ATRIAL FIBRILLATION [None]
  - PRESYNCOPE [None]
  - ACUTE RESPIRATORY FAILURE [None]
